FAERS Safety Report 9162723 (Version 3)
Quarter: 2013Q2

REPORT INFORMATION
  Report Type: Spontaneous
  Country: US (occurrence: US)
  Receive Date: 20130314
  Receipt Date: 20130513
  Transmission Date: 20140414
  Serious: Yes (Hospitalization, Other)
  Sender: FDA-Public Use
  Company Number: PHEH2013US005767

PATIENT
  Age: 53 Year
  Sex: Female
  Weight: 69.84 kg

DRUGS (15)
  1. TIGAN [Concomitant]
     Dosage: 300 MG, UNK
     Route: 048
  2. OMEPRAZOLE [Concomitant]
  3. LORATADINE [Concomitant]
     Dosage: 10 MG, UNK
     Route: 048
  4. MIDODRINE HCL [Concomitant]
  5. OXYCODONE / ACETAMINOPHEN [Concomitant]
     Dosage: 1 DF, PRN
  6. GABAPENTIN [Concomitant]
     Dosage: 600 UG, Q6H
     Route: 048
  7. CYMBALTA [Concomitant]
     Dosage: 30 MG, QD
  8. ONDANSETRON [Concomitant]
     Dosage: 4 MG, UNK
     Route: 048
  9. OXYCODONE HCL [Concomitant]
     Dosage: 15 MG, UNK
     Route: 048
  10. DILANTIN [Concomitant]
     Dosage: 100 MG, UNK
     Route: 048
  11. GILENYA [Suspect]
     Indication: MULTIPLE SCLEROSIS
     Dosage: 0.5 MG, QD
     Route: 048
     Dates: start: 2011
  12. CYANOCOBALAMIN [Concomitant]
     Dosage: 1000 UG/ML, UNK
  13. DIAZEPAM [Concomitant]
     Dosage: 10 MG, UNK
     Route: 048
  14. LEVOTHYROXINE SODIUM [Concomitant]
     Dosage: 75 UG, UNK
     Route: 048
  15. HYDROCHLOROTHIAZIDE [Concomitant]
     Dosage: 25 UG, UNK
     Route: 048

REACTIONS (30)
  - Pneumonia [Recovering/Resolving]
  - Pulmonary congestion [Unknown]
  - Chronic obstructive pulmonary disease [Unknown]
  - Nervous system disorder [Unknown]
  - Electroencephalogram abnormal [Unknown]
  - Brain oedema [Unknown]
  - Central nervous system lesion [Unknown]
  - Deep vein thrombosis [Unknown]
  - Hyperhidrosis [Unknown]
  - Memory impairment [Unknown]
  - Vitamin D deficiency [Unknown]
  - Affect lability [Unknown]
  - Arthropathy [Unknown]
  - Temperature intolerance [Unknown]
  - Amnesia [Unknown]
  - Micturition urgency [Unknown]
  - Visual impairment [Unknown]
  - Visual acuity reduced [Unknown]
  - Muscle spasms [Unknown]
  - Gait disturbance [Unknown]
  - Balance disorder [Unknown]
  - Hypoaesthesia [Unknown]
  - Muscular weakness [Unknown]
  - Cerebellar syndrome [Unknown]
  - VIIth nerve paralysis [Unknown]
  - Pain [Unknown]
  - Fatigue [Unknown]
  - Blood pressure increased [Unknown]
  - Vision blurred [Unknown]
  - Headache [Unknown]
